FAERS Safety Report 8256958-6 (Version None)
Quarter: 2012Q2

REPORT INFORMATION
  Report Type: 
  Country: None (occurrence: None)
  Receive Date: 20120403
  Receipt Date: 20120326
  Transmission Date: 20120825
  Serious: Yes (Hospitalization)
  Sender: FDA-Public Use
  Company Number: US-FRI-1000029356

PATIENT
  Age: 78 Year
  Sex: Female

DRUGS (3)
  1. VIIBRYD [Suspect]
     Dosage: 20 MG
     Route: 048
     Dates: start: 20111228, end: 20120103
  2. VIIBRYD [Suspect]
     Dosage: 10 MG
     Route: 048
     Dates: start: 20111221, end: 20111227
  3. VIIBRYD [Suspect]
     Dosage: 40 MG
     Route: 048
     Dates: start: 20120104, end: 20120127

REACTIONS (2)
  - DELUSION [None]
  - CONFUSIONAL STATE [None]
